FAERS Safety Report 4852215-6 (Version None)
Quarter: 2005Q4

REPORT INFORMATION
  Report Type: 
  Country: None (occurrence: None)
  Receive Date: 20051213
  Receipt Date: 20051123
  Transmission Date: 20060501
  Serious: Yes (Death, Hospitalization)
  Sender: FDA-Public Use
  Company Number: DE-GLAXOSMITHKLINE-D0048090A

PATIENT
  Age: 32 Year
  Sex: Male

DRUGS (4)
  1. KIVEXA [Suspect]
     Indication: HIV INFECTION
     Route: 048
     Dates: start: 20050101
  2. NEVIRAPINE [Suspect]
     Indication: HIV INFECTION
     Route: 048
     Dates: start: 20050101
  3. HIV TREATMENTS (UNSPECIFIED) [Concomitant]
     Indication: HIV INFECTION
     Route: 065
     Dates: end: 20050101
  4. EFAVIRENZ [Concomitant]
     Indication: HIV INFECTION
     Route: 048
     Dates: end: 20050101

REACTIONS (7)
  - BLISTER [None]
  - EPIDERMOLYSIS [None]
  - ERYTHEMA [None]
  - PAIN IN EXTREMITY [None]
  - RASH MACULAR [None]
  - RASH PUSTULAR [None]
  - TOXIC EPIDERMAL NECROLYSIS [None]
